FAERS Safety Report 4582382-3 (Version None)
Quarter: 2005Q1

REPORT INFORMATION
  Report Type: 
  Country: None (occurrence: None)
  Receive Date: 20050125
  Receipt Date: 20041122
  Transmission Date: 20050727
  Serious: No
  Sender: FDA-Public Use
  Company Number: USA040876541

PATIENT
  Age: 75 Year
  Sex: Male

DRUGS (5)
  1. FORTEO [Suspect]
     Indication: OSTEOPOROSIS
     Dosage: 40 UG DAY
     Dates: start: 20040823, end: 20040823
  2. ASPIRIN [Concomitant]
  3. RELAFEN [Concomitant]
  4. LOVASTATIN [Concomitant]
  5. FOSAMAX [Concomitant]

REACTIONS (3)
  - ACCIDENTAL OVERDOSE [None]
  - ASTHENIA [None]
  - MEDICATION ERROR [None]
